FAERS Safety Report 7806742-X (Version None)
Quarter: 2011Q4

REPORT INFORMATION
  Report Type: 
  Country: None (occurrence: None)
  Receive Date: 20111011
  Receipt Date: 20110927
  Transmission Date: 20120403
  Serious: Yes (Other)
  Sender: FDA-Public Use
  Company Number: PHHY2011BR86699

PATIENT
  Age: 50 Year
  Sex: Male
  Weight: 85 kg

DRUGS (1)
  1. EXFORGE HCT [Suspect]
     Dosage: 160 MG VALS/12.5 MG HYDR/5 MG AMLO

REACTIONS (4)
  - HIGH DENSITY LIPOPROTEIN DECREASED [None]
  - BLOOD PRESSURE INCREASED [None]
  - LEFT ATRIAL DILATATION [None]
  - BLOOD TRIGLYCERIDES INCREASED [None]
